FAERS Safety Report 8313172-3 (Version None)
Quarter: 2012Q2

REPORT INFORMATION
  Report Type: 
  Country: None (occurrence: None)
  Receive Date: 20120424
  Receipt Date: 20120412
  Transmission Date: 20120825
  Serious: Yes (Hospitalization)
  Sender: FDA-Public Use
  Company Number: 2012-00640

PATIENT
  Age: 35 Year
  Sex: Female

DRUGS (3)
  1. LITHIUM CARBONATE [Concomitant]
  2. METFORMIN HYDROCHLORIDE [Suspect]
     Indication: POLYCYSTIC OVARIES
  3. VALPROIC ACID [Suspect]
     Indication: MENTAL DISORDER

REACTIONS (2)
  - METABOLIC ACIDOSIS [None]
  - PANCREATITIS ACUTE [None]
